FAERS Safety Report 16083397 (Version 2)
Quarter: 2019Q2

REPORT INFORMATION
  Report Type: Report from Study
  Country: US (occurrence: US)
  Receive Date: 20190318
  Receipt Date: 20190524
  Transmission Date: 20190711
  Serious: Yes (Other)
  Sender: FDA-Public Use
  Company Number: US-ASTELLAS-2019US010678

PATIENT
  Age: 58 Year
  Sex: Male

DRUGS (1)
  1. ENZALUTAMIDE [Suspect]
     Active Substance: ENZALUTAMIDE
     Indication: PRODUCT USED FOR UNKNOWN INDICATION
     Route: 048
     Dates: start: 20181210

REACTIONS (6)
  - Hot flush [Unknown]
  - Product dose omission [Unknown]
  - Hyperhidrosis [Unknown]
  - Urticaria [Unknown]
  - Fatigue [Unknown]
  - Sinusitis [Unknown]

NARRATIVE: CASE EVENT DATE: 20181215
